FAERS Safety Report 8303116-2 (Version None)
Quarter: 2012Q2

REPORT INFORMATION
  Report Type: 
  Country: None (occurrence: None)
  Receive Date: 20120423
  Receipt Date: 20120413
  Transmission Date: 20120825
  Serious: Yes (Other)
  Sender: FDA-Public Use
  Company Number: IE-BIOGENIDEC-2011BI000911

PATIENT
  Age: 41 Year
  Sex: Female

DRUGS (9)
  1. LIPITOR [Concomitant]
  2. PROZAC [Concomitant]
  3. TOILAX [Concomitant]
  4. TYSABRI [Suspect]
     Indication: RELAPSING-REMITTING MULTIPLE SCLEROSIS
     Route: 042
     Dates: start: 20070625, end: 20101117
  5. PHOSPHATE ENEMAS [Concomitant]
  6. CODALAX [Concomitant]
  7. ACTONEL [Concomitant]
  8. FRUMIL [Concomitant]
  9. LANSOPRAZOLE [Concomitant]

REACTIONS (2)
  - MULTIPLE SCLEROSIS RELAPSE [None]
  - PROGRESSIVE MULTIFOCAL LEUKOENCEPHALOPATHY [None]
